FAERS Safety Report 8500102-4 (Version None)
Quarter: 2012Q2

REPORT INFORMATION
  Report Type: 
  Country: None (occurrence: None)
  Receive Date: 20120402
  Receipt Date: 20111103
  Transmission Date: 20120825
  Serious: Yes (Hospitalization, Disabling, Other)
  Sender: FDA-Public Use
  Company Number: 307825USA

PATIENT
  Age: 77 Year
  Sex: Female

DRUGS (2)
  1. ALENDRONATE SODIUM [Suspect]
     Indication: OSTEOPOROSIS
     Dates: start: 20090201, end: 20091101
  2. ALENDRONATE SODIUM [Suspect]
     Indication: OSTEOPOROSIS
     Dates: start: 19980101, end: 20090101

REACTIONS (4)
  - FEMUR FRACTURE [None]
  - STRESS FRACTURE [None]
  - BONE DISORDER [None]
  - LOW TURNOVER OSTEOPATHY [None]
